FAERS Safety Report 8707461 (Version 2)
Quarter: 2012Q4

REPORT INFORMATION
  Report Type: 
  Country: US (occurrence: US)
  Receive Date: 20120804
  Receipt Date: 20121204
  Transmission Date: 20130627
  Serious: No
  Sender: FDA-Public Use
  Company Number: US-009507513-1207USA003160

PATIENT
  Age: 60 Year
  Sex: Male
  Weight: 88.44 kg

DRUGS (4)
  1. VICTRELIS [Suspect]
     Dosage: 800 mg, tid
     Route: 048
  2. RIBAVIRIN [Suspect]
     Dosage: 200 UNK, UNK
     Route: 048
  3. PEGASYS [Suspect]
     Dosage: 180 Microgram/M
     Route: 058
  4. TYLENOL [Concomitant]
     Dosage: 650 mg, q8h
     Route: 048

REACTIONS (4)
  - Influenza like illness [Unknown]
  - Dyspnoea [Unknown]
  - Pruritus [Unknown]
  - Fatigue [Unknown]
